FAERS Safety Report 9652453 (Version 7)
Quarter: 2015Q1

REPORT INFORMATION
  Report Type: Spontaneous
  Country: US (occurrence: US)
  Receive Date: 20131029
  Receipt Date: 20150209
  Transmission Date: 20150721
  Serious: Yes (Hospitalization, Other)
  Sender: FDA-Public Use
  Company Number: US-009507513-1310USA010686

PATIENT
  Sex: Female
  Weight: 60.32 kg

DRUGS (3)
  1. FOSAMAX [Suspect]
     Active Substance: ALENDRONATE SODIUM
     Dosage: UNK UNK,
     Route: 048
     Dates: start: 19961115
  2. SYNTHROID [Concomitant]
     Active Substance: LEVOTHYROXINE SODIUM
     Indication: THYROID DISORDER
     Dosage: UNK
     Dates: start: 1964
  3. FOSAMAX [Suspect]
     Active Substance: ALENDRONATE SODIUM
     Indication: OSTEOPOROSIS
     Dosage: 70 MG, UNK
     Route: 048
     Dates: end: 200901

REACTIONS (31)
  - Cataract operation [Unknown]
  - Hypothyroidism [Unknown]
  - Tinnitus [Unknown]
  - Uveitis [Not Recovered/Not Resolved]
  - Femur fracture [Recovering/Resolving]
  - Hypertension [Unknown]
  - Vocal cord thickening [Unknown]
  - Hypercholesterolaemia [Unknown]
  - Glucose tolerance impaired [Unknown]
  - Benign tumour excision [Unknown]
  - Cataract [Unknown]
  - Cystoscopy [Unknown]
  - Fibromyalgia [Unknown]
  - C-reactive protein increased [Unknown]
  - Blood creatinine abnormal [Unknown]
  - Atrophic vulvovaginitis [Unknown]
  - Femur fracture [Unknown]
  - Femur fracture [Recovered/Resolved]
  - Intramedullary rod insertion [Recovering/Resolving]
  - Trabeculectomy [Unknown]
  - Ankle fracture [Unknown]
  - Gait disturbance [Unknown]
  - Neuropathy peripheral [Unknown]
  - Electrocardiogram ST-T segment abnormal [Unknown]
  - Ovarian cyst [Unknown]
  - Inadequate diet [Unknown]
  - Abdominal operation [Unknown]
  - Red blood cell sedimentation rate increased [Unknown]
  - Osteoarthritis [Unknown]
  - Pain in extremity [Not Recovered/Not Resolved]
  - Arthralgia [Unknown]

NARRATIVE: CASE EVENT DATE: 2001
